FAERS Safety Report 24176891 (Version 2)
Quarter: 2024Q3

REPORT INFORMATION
  Report Type: Spontaneous
  Country: SA (occurrence: SA)
  Receive Date: 20240806
  Receipt Date: 20240812
  Transmission Date: 20241017
  Serious: Yes (Hospitalization)
  Sender: ALKEM
  Company Number: SA-ALKEM LABORATORIES LIMITED-SA-ALKEM-2024-16976

PATIENT
  Age: 65 Year
  Sex: Female

DRUGS (10)
  1. ATORVASTATIN CALCIUM [Interacting]
     Active Substance: ATORVASTATIN CALCIUM
     Indication: Product used for unknown indication
     Dosage: 80 MILLIGRAM, OD (HIGH INTENSITY)
     Route: 048
  2. ATORVASTATIN CALCIUM [Interacting]
     Active Substance: ATORVASTATIN CALCIUM
     Dosage: UNK; RESTARTED
     Route: 065
  3. CIPROFLOXACIN [Interacting]
     Active Substance: CIPROFLOXACIN
     Indication: Urinary tract disorder
     Dosage: 500 MILLIGRAM, BID (FOR 5 DAYS)
     Route: 065
  4. CIPROFLOXACIN [Interacting]
     Active Substance: CIPROFLOXACIN
     Indication: Micturition urgency
  5. ASPIRIN [Concomitant]
     Active Substance: ASPIRIN
     Indication: Product used for unknown indication
     Dosage: 81 MG/DAY
     Route: 065
  6. BISOPROLOL [Concomitant]
     Active Substance: BISOPROLOL\BISOPROLOL FUMARATE
     Indication: Product used for unknown indication
     Dosage: 5 MILLIGRAM, BID
     Route: 065
  7. PERINDOPRIL [Concomitant]
     Active Substance: PERINDOPRIL
     Indication: Product used for unknown indication
     Dosage: 5 MILLIGRAM, QD
     Route: 065
  8. RISPERIDONE [Concomitant]
     Active Substance: RISPERIDONE
     Indication: Insomnia
     Dosage: 1 MILLIGRAM
     Route: 065
  9. RISPERIDONE [Concomitant]
     Active Substance: RISPERIDONE
     Indication: Agitation
  10. TICAGRELOR [Concomitant]
     Active Substance: TICAGRELOR
     Indication: Product used for unknown indication
     Dosage: 90 MILLIGRAM, BID
     Route: 065

REACTIONS (3)
  - Drug interaction [Unknown]
  - Blood creatine phosphokinase increased [Recovered/Resolved]
  - Myopathy [Recovered/Resolved]
